FAERS Safety Report 8363097 (Version 3)
Quarter: 2013Q2

REPORT INFORMATION
  Report Type: Report from Study
  Country: US (occurrence: US)
  Receive Date: 20120127
  Receipt Date: 20130419
  Transmission Date: 20140414
  Serious: Yes (Other)
  Sender: FDA-Public Use
  Company Number: US-ABBOTT-11P-163-0705407-00

PATIENT
  Age: 49 Year
  Sex: Male
  Weight: 81.72 kg

DRUGS (6)
  1. HUMIRA 40 MG/0.8 ML PEN [Suspect]
     Indication: PSORIASIS
     Dates: start: 200909, end: 200909
  2. HUMIRA 40 MG/0.8 ML PEN [Suspect]
     Dosage: ONE WEEK AFTER INITIAL DOSE
     Dates: start: 200909, end: 201012
  3. HUMIRA 40 MG/0.8 ML PEN [Suspect]
     Dates: start: 201101, end: 201102
  4. HUMIRA 40 MG/0.8 ML PEN [Suspect]
     Dates: start: 201103
  5. ELIDEL [Concomitant]
     Indication: PSORIASIS
  6. NEURONTIN [Concomitant]
     Indication: PAIN

REACTIONS (24)
  - Neuropathy peripheral [Recovered/Resolved]
  - Neuropathy peripheral [Recovered/Resolved]
  - Neuritis [Recovered/Resolved]
  - Incision site haemorrhage [Recovered/Resolved]
  - Morton^s neuroma [Recovered/Resolved]
  - Neuralgia [Recovered/Resolved]
  - Wound dehiscence [Recovering/Resolving]
  - Wound haemorrhage [Recovered/Resolved]
  - Psoriasis [Not Recovered/Not Resolved]
  - Wound dehiscence [Recovered/Resolved]
  - Impaired healing [Recovered/Resolved]
  - Pain in extremity [Recovered/Resolved]
  - Muscle hypertrophy [Not Recovered/Not Resolved]
  - Muscle hypertrophy [Not Recovered/Not Resolved]
  - Polymyalgia rheumatica [Not Recovered/Not Resolved]
  - Localised infection [Recovered/Resolved]
  - Psoriasis [Not Recovered/Not Resolved]
  - Pain [Not Recovered/Not Resolved]
  - Intervertebral disc protrusion [Not Recovered/Not Resolved]
  - Hypoaesthesia [Not Recovered/Not Resolved]
  - Hypoaesthesia [Not Recovered/Not Resolved]
  - Hypokinesia [Not Recovered/Not Resolved]
  - Back disorder [Not Recovered/Not Resolved]
  - Pain [Not Recovered/Not Resolved]
